FAERS Safety Report 9278310 (Version 1)
Quarter: 2013Q2

REPORT INFORMATION
  Report Type: Spontaneous
  Country: JP (occurrence: JP)
  Receive Date: 20130508
  Receipt Date: 20130508
  Transmission Date: 20140414
  Serious: Yes (Death)
  Sender: FDA-Public Use
  Company Number: JP-ASTELLAS-2013US004762

PATIENT
  Age: 75 Year
  Sex: Male

DRUGS (3)
  1. AMBISOME [Suspect]
     Indication: PNEUMONIA
     Dosage: 100 MG, UID/QD
     Route: 041
     Dates: start: 20130415, end: 20130423
  2. AMBISOME [Suspect]
     Indication: SYSTEMIC MYCOSIS
     Dosage: UNK
     Route: 065
     Dates: end: 20130405
  3. FUNGUARD [Concomitant]
     Indication: PYREXIA
     Dosage: UNK
     Route: 065

REACTIONS (1)
  - Death [Fatal]
